FAERS Safety Report 21806612 (Version 1)
Quarter: 2023Q1

REPORT INFORMATION
  Report Type: Report from Study
  Country: US (occurrence: US)
  Receive Date: 20230102
  Receipt Date: 20230102
  Transmission Date: 20230418
  Serious: No
  Sender: FDA-Public Use
  Company Number: US-ABBVIE-4210551

PATIENT
  Sex: Female

DRUGS (1)
  1. SKYRIZI [Suspect]
     Active Substance: RISANKIZUMAB-RZAA
     Indication: Psoriasis
     Dosage: FORM STRENGTH: 150  MILLIGRAM
     Route: 058
     Dates: start: 20221024

REACTIONS (5)
  - Hair texture abnormal [Unknown]
  - Feeling drunk [Unknown]
  - Feeling hot [Recovered/Resolved]
  - Product preparation issue [Unknown]
  - Dysgeusia [Recovered/Resolved]
